FAERS Safety Report 8261739-3 (Version None)
Quarter: 2012Q2

REPORT INFORMATION
  Report Type: 
  Country: None (occurrence: None)
  Receive Date: 20120405
  Receipt Date: 20120327
  Transmission Date: 20120825
  Serious: Yes (Hospitalization, Other)
  Sender: FDA-Public Use
  Company Number: US-ELI_LILLY_AND_COMPANY-US201111000451

PATIENT
  Sex: Female

DRUGS (4)
  1. FORTEO [Suspect]
     Dosage: 20 UG, QD
  2. INSULIN [Concomitant]
     Dosage: UNK, QD
  3. FORTEO [Suspect]
     Indication: OSTEOPOROSIS
     Dosage: 20 UG, QD
     Dates: start: 20110801
  4. FORTEO [Suspect]
     Dosage: 20 UG, QD
     Dates: end: 20120217

REACTIONS (8)
  - ABDOMINAL DISCOMFORT [None]
  - FALL [None]
  - DIABETES MELLITUS INADEQUATE CONTROL [None]
  - INFECTION [None]
  - PAIN IN EXTREMITY [None]
  - INJECTION SITE PAIN [None]
  - CORONARY ARTERY BYPASS [None]
  - SPINAL COMPRESSION FRACTURE [None]
